FAERS Safety Report 7677362-5 (Version None)
Quarter: 2011Q3

REPORT INFORMATION
  Report Type: 
  Country: None (occurrence: None)
  Receive Date: 20110811
  Receipt Date: 20110803
  Transmission Date: 20111222
  Serious: Yes (Hospitalization)
  Sender: FDA-Public Use
  Company Number: JP-ELI_LILLY_AND_COMPANY-JP200903003192

PATIENT
  Sex: Male

DRUGS (13)
  1. GASTER D /JPN/ [Concomitant]
     Dosage: 20 MG, OTHER
     Route: 048
     Dates: start: 20060504
  2. PREDNISOLONE [Concomitant]
     Dosage: 10 MG, DAILY (1/D)
     Route: 048
  3. LEVOFLOXACIN [Concomitant]
     Dosage: UNK, DAILY (1/D)
     Route: 048
     Dates: start: 20081205, end: 20081218
  4. LEVOFLOXACIN [Concomitant]
     Dosage: UNK, DAILY (1/D)
     Route: 048
     Dates: start: 20090109, end: 20090123
  5. MIYA-BM [Concomitant]
     Dosage: 2 D/F, 3/D
     Route: 048
     Dates: start: 20081031
  6. NATEGLINIDE [Concomitant]
     Dosage: 90 MG, 3/D
     Route: 048
     Dates: start: 20081203
  7. PREDNISOLONE [Concomitant]
     Indication: HYPERTHERMIA
     Dosage: 30 MG, DAILY (1/D)
     Route: 048
     Dates: start: 20081203
  8. GEMZAR [Suspect]
     Indication: BILE DUCT CANCER STAGE IV
     Dosage: 1000 MG, OTHER
     Route: 042
     Dates: start: 20081216, end: 20090213
  9. POLARAMINE /00072502/ [Concomitant]
     Dosage: 2 MG, 3/D
     Route: 048
     Dates: start: 20081120, end: 20081228
  10. URSO 250 [Concomitant]
     Dosage: 2 D/F, 3/D
     Route: 048
     Dates: start: 20090204
  11. MAGNESIUM OXIDE [Concomitant]
     Dosage: 1 G, 3/D
     Route: 048
     Dates: start: 20060501
  12. PREDNISOLONE [Concomitant]
     Dosage: 15 MG, DAILY (1/D)
     Route: 048
     Dates: start: 20081201
  13. PREDNISOLONE [Concomitant]
     Dosage: 5 MG, DAILY (1/D)
     Route: 048
     Dates: end: 20090106

REACTIONS (2)
  - CHOLANGITIS [None]
  - INTERSTITIAL LUNG DISEASE [None]
